FAERS Safety Report 6692908-1 (Version None)
Quarter: 2010Q2

REPORT INFORMATION
  Report Type: 
  Country: None (occurrence: None)
  Receive Date: 20100422
  Receipt Date: 20100412
  Transmission Date: 20101027
  Serious: Yes (Hospitalization)
  Sender: FDA-Public Use
  Company Number: ES-BAXTER-2010BH009649

PATIENT
  Age: 89 Year
  Sex: Male

DRUGS (6)
  1. ENDOXAN BAXTER [Suspect]
     Indication: PROSTATE CANCER METASTATIC
     Route: 048
     Dates: start: 20090828, end: 20100121
  2. FORTECORTIN [Concomitant]
     Indication: PROSTATE CANCER METASTATIC
     Route: 048
     Dates: start: 20090828
  3. DURAGESIC-100 [Concomitant]
     Indication: PAIN
     Route: 062
     Dates: start: 20090101, end: 20100121
  4. TRIPTORELIN [Concomitant]
     Indication: PROSTATE CANCER METASTATIC
     Route: 030
     Dates: start: 20090101
  5. ENALAPRIL MALEATE [Concomitant]
     Indication: HYPERTENSION
     Route: 048
     Dates: start: 20090101, end: 20100121
  6. SEGURIL [Concomitant]
     Indication: HYPERTENSION
     Route: 048
     Dates: start: 20090101

REACTIONS (1)
  - RENAL FAILURE ACUTE [None]
